FAERS Safety Report 18535321 (Version 2)
Quarter: 2021Q1

REPORT INFORMATION
  Report Type: Spontaneous
  Country: US (occurrence: US)
  Receive Date: 20201123
  Receipt Date: 20210321
  Transmission Date: 20210419
  Serious: Yes (Other)
  Sender: FDA-Public Use
  Company Number: US-TEVA-2020-US-1851892

PATIENT
  Sex: Male
  Weight: 96.16 kg

DRUGS (8)
  1. AMLODIPINE/VALSARTAN/HYDROCHLOROTHIAZIDE TEVA [Suspect]
     Active Substance: AMLODIPINE\HYDROCHLOROTHIAZIDE\VALSARTAN
     Indication: HYPERTENSION
     Dosage: 10/160/12.5 MG
     Route: 065
     Dates: start: 20150107, end: 20180319
  2. DOXAZOSIN [Concomitant]
     Active Substance: DOXAZOSIN MESYLATE
     Indication: HYPERTENSION
     Dosage: CARDURA
     Route: 065
     Dates: start: 2012
  3. VIAGRA [Concomitant]
     Active Substance: SILDENAFIL CITRATE
     Route: 065
  4. IBUPROFEN. [Concomitant]
     Active Substance: IBUPROFEN
     Indication: HEADACHE
     Dosage: AS NEEDED
     Route: 065
  5. CEPHALEXIN. [Concomitant]
     Active Substance: CEPHALEXIN
     Dosage: 500 MG
     Route: 065
  6. LOSARTAN POTASSIUMHCTZ [Concomitant]
     Indication: HYPERTENSION
     Dosage: 100?12.5 MG
     Route: 065
  7. XANAX [Concomitant]
     Active Substance: ALPRAZOLAM
     Indication: ANXIETY
     Route: 065
     Dates: start: 201805
  8. EXFORGE HCT [Suspect]
     Active Substance: AMLODIPINE BESYLATE\HYDROCHLOROTHIAZIDE\VALSARTAN
     Indication: HYPERTENSION
     Dosage: 10?160?12.5 MG
     Route: 048
     Dates: start: 2012, end: 2014

REACTIONS (1)
  - Prostate cancer [Not Recovered/Not Resolved]
